FAERS Safety Report 14938893 (Version 1)
Quarter: 2020Q3

REPORT INFORMATION
  Report Type: Spontaneous
  Country: DE (occurrence: DE)
  Receive Date: 20180525
  Receipt Date: 20180525
  Transmission Date: 20201105
  Serious: Yes (Hospitalization)
  Sender: FDA-Public Use
  Company Number: IND-DE-009507513-1805DEU007685

PATIENT
  Age: 54 Year
  Sex: Male

DRUGS (1)
  1. ARCOXIA [Suspect]
     Active Substance: ETORICOXIB
     Dosage: 90 MG, 1?0?0?0
     Route: 048

REACTIONS (4)
  - Abdominal pain [Unknown]
  - Product prescribing error [Unknown]
  - Diarrhoea [Unknown]
  - Abdominal pain lower [Unknown]
